FAERS Safety Report 12496993 (Version 4)
Quarter: 2016Q4

REPORT INFORMATION
  Report Type: Spontaneous
  Country: CA (occurrence: CA)
  Receive Date: 20160624
  Receipt Date: 20161010
  Transmission Date: 20170207
  Serious: Yes (Other)
  Sender: FDA-Public Use
  Company Number: CA-PFIZER INC-2016279519

PATIENT
  Age: 75 Year
  Sex: Female

DRUGS (2)
  1. PLAQUENIL [Concomitant]
     Active Substance: HYDROXYCHLOROQUINE SULFATE
     Dosage: UNK
  2. XELJANZ [Suspect]
     Active Substance: TOFACITINIB CITRATE
     Indication: RHEUMATOID ARTHRITIS
     Dosage: 5 MG, 2X/DAY
     Route: 048
     Dates: start: 20160518, end: 20160920

REACTIONS (12)
  - Dyspnoea [Recovering/Resolving]
  - Headache [Recovered/Resolved]
  - Pain [Unknown]
  - Drug ineffective [Unknown]
  - Dizziness [Unknown]
  - Hot flush [Unknown]
  - Fall [Recovering/Resolving]
  - Asthenia [Not Recovered/Not Resolved]
  - Feeling cold [Unknown]
  - Condition aggravated [Unknown]
  - Fracture [Recovering/Resolving]
  - Fatigue [Unknown]

NARRATIVE: CASE EVENT DATE: 2016
